FAERS Safety Report 7615791 (Version 2)
Quarter: 2018Q4

REPORT INFORMATION
  Report Type: Spontaneous
  Country: SE (occurrence: SE)
  Receive Date: 20101004
  Receipt Date: 20181109
  Transmission Date: 20190205
  Serious: Yes (Hospitalization)
  Sender: FDA-Public Use
  Company Number: SE-ASTRAZENECA-2010SE44767

PATIENT
  Age: 87 Year
  Sex: Female

DRUGS (3)
  1. SOBRIL [Concomitant]
     Active Substance: OXAZEPAM
  2. SEROQUEL [Suspect]
     Active Substance: QUETIAPINE FUMARATE
     Indication: DEPRESSION
     Route: 048
     Dates: end: 20100827
  3. IMOVANE [Concomitant]
     Active Substance: ZOPICLONE

REACTIONS (2)
  - Blood bilirubin increased [Not Recovered/Not Resolved]
  - Transaminases increased [Not Recovered/Not Resolved]

NARRATIVE: CASE EVENT DATE: 20100820
